FAERS Safety Report 7277677-9 (Version None)
Quarter: 2011Q1

REPORT INFORMATION
  Report Type: 
  Country: None (occurrence: None)
  Receive Date: 20110207
  Receipt Date: 20110202
  Transmission Date: 20110831
  Serious: No
  Sender: FDA-Public Use
  Company Number: US-JNJFOC-20110201575

PATIENT
  Sex: Male
  Weight: 86.18 kg

DRUGS (8)
  1. COZAAR [Concomitant]
     Indication: CARDIAC DISORDER
     Route: 048
  2. PLAVIX [Concomitant]
     Indication: CARDIAC DISORDER
     Route: 048
  3. METOPROLOL TARTRATE [Concomitant]
     Indication: CARDIAC DISORDER
     Route: 048
  4. PRAVACHOL [Concomitant]
     Indication: BLOOD CHOLESTEROL
     Route: 048
  5. ASPIRIN [Concomitant]
     Indication: CARDIAC DISORDER
     Route: 048
  6. SYNTHROID [Concomitant]
     Indication: THYROID DISORDER
     Route: 048
  7. PRINIVIL [Concomitant]
     Indication: CARDIAC DISORDER
     Route: 048
  8. FENTANYL-100 [Suspect]
     Indication: LIMB CRUSHING INJURY
     Dosage: AS NEEDED, NDC:0781-7241-55
     Route: 062

REACTIONS (5)
  - MALAISE [None]
  - WRONG TECHNIQUE IN DRUG USAGE PROCESS [None]
  - FEELING ABNORMAL [None]
  - DRUG PRESCRIBING ERROR [None]
  - SOMNOLENCE [None]
